FAERS Safety Report 7944101-X (Version None)
Quarter: 2011Q4

REPORT INFORMATION
  Report Type: 
  Country: None (occurrence: None)
  Receive Date: 20111128
  Receipt Date: 20111115
  Transmission Date: 20120403
  Serious: Yes (Other)
  Sender: FDA-Public Use
  Company Number: AU-ASTRAZENECA-2011SE51722

PATIENT
  Age: 62 Year
  Sex: Male

DRUGS (5)
  1. FLOMAXTRA [Concomitant]
     Indication: PROSTATIC DISORDER
     Route: 048
  2. FLOMAXTRA [Concomitant]
     Indication: NOCTURIA
     Route: 048
  3. IRESSA [Suspect]
     Route: 048
     Dates: start: 20110601
  4. DEXAMETHASONE [Concomitant]
     Indication: ROUTINE HEALTH MAINTENANCE
     Route: 048
  5. PROSTATE EASE [Concomitant]
     Route: 048

REACTIONS (4)
  - LACERATION [None]
  - CONTUSION [None]
  - BLOOD URINE PRESENT [None]
  - RASH [None]
